FAERS Safety Report 4762378-9 (Version None)
Quarter: 2005Q3

REPORT INFORMATION
  Report Type: 
  Country: None (occurrence: None)
  Receive Date: 20050902
  Receipt Date: 20050519
  Transmission Date: 20060218
  Serious: Yes (Other)
  Sender: FDA-Public Use
  Company Number: 2005S1001834

PATIENT
  Age: 79 Year
  Sex: Female
  Weight: 86.1834 kg

DRUGS (13)
  1. FENTANYL [Suspect]
     Indication: ARTHRALGIA
     Dosage: 25 MCG; X1; TRDL
     Dates: start: 20050324, end: 20050326
  2. FENTANYL [Suspect]
     Indication: BACK PAIN
     Dosage: 25 MCG; X1; TRDL
     Dates: start: 20050324, end: 20050326
  3. FENTANYL [Suspect]
     Indication: PAIN IN EXTREMITY
     Dosage: 25 MCG; X1; TRDL
     Dates: start: 20050324, end: 20050326
  4. CLOZAPINE [Concomitant]
  5. GLIPIZIDE [Concomitant]
  6. ISOSORBIDE MONONITRATE [Concomitant]
  7. WARFARIN SODIUM [Concomitant]
  8. CAPTOPRIL [Concomitant]
  9. ZOLPIDEM TARTRATE [Concomitant]
  10. QUETIAPINE FUMARATE [Concomitant]
  11. PAROXETINE HYDROCHLORIDE [Concomitant]
  12. OLANZAPINE [Concomitant]
  13. PARACETAMOL/HYDROCODONE BITARTRATE [Concomitant]

REACTIONS (6)
  - CONFUSIONAL STATE [None]
  - DIFFICULTY IN WALKING [None]
  - DISORIENTATION [None]
  - FALL [None]
  - INCOHERENT [None]
  - SEDATION [None]
